FAERS Safety Report 23477988 (Version 1)
Quarter: 2024Q1

REPORT INFORMATION
  Report Type: Report from Study
  Country: CL (occurrence: CL)
  Receive Date: 20240204
  Receipt Date: 20240204
  Transmission Date: 20240410
  Serious: Yes (Hospitalization)
  Sender: FDA-Public Use
  Company Number: CL-002147023-NVSC2024CL022370

PATIENT
  Age: 40 Year
  Sex: Male

DRUGS (1)
  1. HYRIMOZ [Suspect]
     Active Substance: ADALIMUMAB-ADAZ
     Indication: Product used for unknown indication
     Dosage: 40 MG, BIW
     Route: 058
     Dates: start: 20230921

REACTIONS (3)
  - Pericardial effusion [Not Recovered/Not Resolved]
  - Decreased immune responsiveness [Unknown]
  - Pleural effusion [Not Recovered/Not Resolved]
